FAERS Safety Report 23421243 (Version 2)
Quarter: 2024Q1

REPORT INFORMATION
  Report Type: Report from Study
  Country: US (occurrence: US)
  Receive Date: 20240119
  Receipt Date: 20240311
  Transmission Date: 20240410
  Serious: Yes (Other)
  Sender: FDA-Public Use
  Company Number: US-ABBVIE-5544454

PATIENT
  Age: 33 Year
  Sex: Female

DRUGS (2)
  1. HUMIRA [Suspect]
     Active Substance: ADALIMUMAB
     Indication: Product used for unknown indication
     Dosage: CITRATE FREE?LAST ADMIN DATE- JUN 2018
     Route: 058
     Dates: start: 20180608
  2. HUMIRA [Suspect]
     Active Substance: ADALIMUMAB
     Dosage: CITRTAE FREE
     Route: 058
     Dates: start: 20180630

REACTIONS (7)
  - Systemic lupus erythematosus [Recovering/Resolving]
  - Abdominal pain [Recovering/Resolving]
  - Large intestine polyp [Recovering/Resolving]
  - Antinuclear antibody positive [Unknown]
  - Laboratory test abnormal [Unknown]
  - Laboratory test abnormal [Unknown]
  - Rash [Unknown]

NARRATIVE: CASE EVENT DATE: 20231205
